FAERS Safety Report 17593305 (Version 1)
Quarter: 2020Q1

REPORT INFORMATION
  Report Type: Spontaneous
  Country: US (occurrence: US)
  Receive Date: 20200327
  Receipt Date: 20200327
  Transmission Date: 20200409
  Serious: No
  Sender: FDA-Public Use
  Company Number: US-TEVA-2020-US-1212229

PATIENT
  Age: 71 Year
  Sex: Female

DRUGS (1)
  1. CLONIDINE. [Suspect]
     Active Substance: CLONIDINE
     Dosage: PATCH 0.2 MCG/HR
     Route: 065

REACTIONS (3)
  - Extrasystoles [Recovered/Resolved]
  - Blood pressure increased [Unknown]
  - Ventricular extrasystoles [Recovered/Resolved]
